FAERS Safety Report 14896288 (Version 2)
Quarter: 2018Q2

REPORT INFORMATION
  Report Type: Report from Study
  Country: US (occurrence: US)
  Receive Date: 20180515
  Receipt Date: 20180522
  Transmission Date: 20180711
  Serious: Yes (Hospitalization, Other)
  Sender: FDA-Public Use
  Company Number: US-BRISTOL-MYERS SQUIBB COMPANY-BMS-2018-042856

PATIENT
  Age: 53 Year
  Sex: Male
  Weight: 79.8 kg

DRUGS (2)
  1. NIVOLUMAB [Suspect]
     Active Substance: NIVOLUMAB
     Indication: TRANSITIONAL CELL CARCINOMA
     Dosage: 480 MG, UNK
     Route: 042
     Dates: start: 20171219, end: 20180423
  2. CABOZANTINIB [Suspect]
     Active Substance: CABOZANTINIB
     Indication: TRANSITIONAL CELL CARCINOMA
     Dosage: 260 MG, UNK
     Route: 048
     Dates: start: 20171219, end: 20180424

REACTIONS (7)
  - Back pain [Unknown]
  - Pyrexia [Recovered/Resolved]
  - Urinary tract infection [Unknown]
  - Sepsis [Unknown]
  - Pancytopenia [Unknown]
  - Vomiting [Unknown]
  - Aspiration [Unknown]

NARRATIVE: CASE EVENT DATE: 20180425
